FAERS Safety Report 4684472-3 (Version None)
Quarter: 2005Q2

REPORT INFORMATION
  Report Type: 
  Country: None (occurrence: None)
  Receive Date: 20050531
  Receipt Date: 20040929
  Transmission Date: 20051028
  Serious: Yes (Other)
  Sender: FDA-Public Use
  Company Number: USA040977659

PATIENT
  Age: 37 Year
  Sex: Female

DRUGS (8)
  1. ZYPREXA [Suspect]
     Indication: SCHIZOPHRENIA
     Dosage: 20 MG DAY
     Route: 048
  2. AMBIEN [Concomitant]
  3. ALPRAZOLAM [Concomitant]
  4. PROZAC [Concomitant]
  5. PHENYTOIN [Concomitant]
  6. PAXIL [Concomitant]
  7. REMERON (MIRTAZAPINE ORIFARM) [Concomitant]
  8. DEPAKOTE [Concomitant]

REACTIONS (18)
  - ASTHENIA [None]
  - CONFUSIONAL STATE [None]
  - DEPRESSED MOOD [None]
  - DISTURBANCE IN ATTENTION [None]
  - DIZZINESS [None]
  - DRY MOUTH [None]
  - FALL [None]
  - FEELING ABNORMAL [None]
  - HALO VISION [None]
  - LETHARGY [None]
  - LOSS OF CONSCIOUSNESS [None]
  - MALAISE [None]
  - MEDICATION ERROR [None]
  - NAUSEA [None]
  - SOMNOLENCE [None]
  - TONGUE BITING [None]
  - TREMOR [None]
  - VERTIGO [None]
